FAERS Safety Report 6153233-0 (Version None)
Quarter: 2009Q2

REPORT INFORMATION
  Report Type: 
  Country: None (occurrence: None)
  Receive Date: 20090409
  Receipt Date: 20090331
  Transmission Date: 20091009
  Serious: Yes (Other)
  Sender: FDA-Public Use
  Company Number: GXKR2009DE04088

PATIENT
  Age: 42 Year
  Sex: Male

DRUGS (5)
  1. CEFTRIAXONE [Suspect]
     Indication: WHIPPLE'S DISEASE
  2. CO-TRIMOXAZOLE (NGX) (SULFAMETHOXAZOLE, TRIMETHOPRIM) [Suspect]
     Indication: WHIPPLE'S DISEASE
  3. DOXYCYCLINE [Suspect]
     Indication: WHIPPLE'S DISEASE
  4. HYDROXYCHLOROQUINE (NGX) (HYDROCHLOROQUINE) [Suspect]
     Indication: WHIPPLE'S DISEASE
  5. STREPTOMYCIN [Suspect]
     Indication: WHIPPLE'S DISEASE

REACTIONS (9)
  - DERMATITIS [None]
  - EYE SWELLING [None]
  - HERPES DERMATITIS [None]
  - HERPES SIMPLEX [None]
  - IMMUNE RECONSTITUTION SYNDROME [None]
  - LYMPHOEDEMA [None]
  - PANNICULITIS [None]
  - PERIORBITAL OEDEMA [None]
  - SKIN NODULE [None]
